FAERS Safety Report 18495820 (Version 1)
Quarter: 2020Q4

REPORT INFORMATION
  Report Type: Spontaneous
  Country: PK (occurrence: PK)
  Receive Date: 20201112
  Receipt Date: 20201112
  Transmission Date: 20210114
  Serious: Yes (Death)
  Sender: FDA-Public Use
  Company Number: PK-CORDEN PHARMA LATINA S.P.A.-PK-2020COR000026

PATIENT
  Age: 12 Month
  Weight: 7.3 kg

DRUGS (3)
  1. DAUNORUBICIN [Suspect]
     Active Substance: DAUNORUBICIN
     Indication: ACUTE MYELOID LEUKAEMIA
     Dosage: 50 MG/M2, QD, 1 HR INFUSION, DAYS 1, 3 AND 5 (3 DOSES)
     Route: 042
  2. CYTARABINE. [Suspect]
     Active Substance: CYTARABINE
     Indication: ACUTE MYELOID LEUKAEMIA
     Dosage: 100 MG/M2, Q12 HS, IV PUSH, DAYS 1 TO 10 (20 DOSES)
     Route: 042
  3. ETOPOSIDE. [Suspect]
     Active Substance: ETOPOSIDE
     Indication: ACUTE MYELOID LEUKAEMIA
     Dosage: 100 MG/M2, DAILY, 4 HR INFUSION, DAYS 1 TO 5 (5 DOSES)
     Route: 042

REACTIONS (3)
  - Gastrointestinal haemorrhage [Fatal]
  - Blood potassium decreased [Fatal]
  - Hypoalbuminaemia [Fatal]
